FAERS Safety Report 6344570-5 (Version None)
Quarter: 2009Q3

REPORT INFORMATION
  Report Type: 
  Country: None (occurrence: None)
  Receive Date: 20090908
  Receipt Date: 20090828
  Transmission Date: 20100115
  Serious: Yes (Death, Hospitalization, Other)
  Sender: FDA-Public Use
  Company Number: BE-BAXTER-2009BH012811

PATIENT
  Age: 16 Year
  Sex: Male
  Weight: 65 kg

DRUGS (16)
  1. SUPRANE [Suspect]
     Indication: ANAESTHESIA
     Route: 055
     Dates: start: 20090724, end: 20090724
  2. NITROUS OXIDE [Suspect]
     Indication: ANAESTHESIA
     Route: 055
     Dates: start: 20090724, end: 20090724
  3. AUGMENTIN                               /SCH/ [Concomitant]
     Indication: APPENDICITIS
     Route: 042
     Dates: start: 20090724
  4. BUSCOPAN [Concomitant]
     Indication: PAIN
     Route: 042
     Dates: start: 20090724
  5. PARACETAMOL [Concomitant]
     Indication: PAIN
     Route: 042
     Dates: start: 20090724
  6. DIPRIVAN [Concomitant]
     Indication: ANAESTHESIA
     Route: 042
     Dates: start: 20090724
  7. LIDOCAINE [Concomitant]
     Indication: DRUG USE FOR UNKNOWN INDICATION
     Route: 042
     Dates: start: 20090724
  8. SUFENTANIL CITRATE [Concomitant]
     Indication: PAIN
     Route: 042
     Dates: start: 20090724
  9. NIMBEX [Concomitant]
     Indication: NEUROMUSCULAR BLOCKADE
     Route: 042
     Dates: start: 20090724
  10. DEXTROSE [Concomitant]
     Indication: DRUG USE FOR UNKNOWN INDICATION
     Route: 065
     Dates: start: 20090724
  11. 0.45% SODIUM CHLORIDE INJECTION IN PLASTIC CONTAINER [Concomitant]
     Indication: DRUG USE FOR UNKNOWN INDICATION
     Route: 065
     Dates: start: 20090724
  12. HARTMANN'S SOLUTION FOR INJECTION [Concomitant]
     Indication: DRUG USE FOR UNKNOWN INDICATION
     Route: 065
     Dates: start: 20090725
  13. DICLOFENAC [Concomitant]
     Indication: DRUG USE FOR UNKNOWN INDICATION
     Route: 065
     Dates: start: 20090725
  14. METAMIZOLE [Concomitant]
     Indication: DRUG USE FOR UNKNOWN INDICATION
     Route: 065
     Dates: start: 20090725
  15. DIPIDOLOR [Concomitant]
     Indication: DRUG USE FOR UNKNOWN INDICATION
     Route: 065
     Dates: start: 20090725
  16. ALIZAPRIDE [Concomitant]
     Indication: NAUSEA
     Dates: start: 20090624, end: 20090624

REACTIONS (7)
  - ALVEOLITIS [None]
  - CARDIO-RESPIRATORY ARREST [None]
  - COUGH [None]
  - DYSPNOEA [None]
  - HAEMOPTYSIS [None]
  - HYPOXIA [None]
  - RESPIRATORY DISTRESS [None]
